FAERS Safety Report 24669212 (Version 1)
Quarter: 2024Q4

REPORT INFORMATION
  Report Type: Spontaneous
  Country: DE (occurrence: DE)
  Receive Date: 20241127
  Receipt Date: 20241127
  Transmission Date: 20250114
  Serious: Yes (Other)
  Sender: CHEPLAPHARM
  Company Number: DE-CHEPLA-2024014774

PATIENT
  Age: 6 Decade
  Sex: Female

DRUGS (1)
  1. CLONAZEPAM [Suspect]
     Active Substance: CLONAZEPAM
     Dosage: REDUCED DOSE INDEPENDENTLY

REACTIONS (6)
  - Nephrolithiasis [Unknown]
  - Malaise [Unknown]
  - Abdominal pain lower [Unknown]
  - Fall [Unknown]
  - Cystitis [Unknown]
  - Intentional product use issue [Unknown]
